FAERS Safety Report 20159396 (Version 1)
Quarter: 2021Q4

REPORT INFORMATION
  Report Type: Spontaneous
  Country: FR (occurrence: FR)
  Receive Date: 20211208
  Receipt Date: 20211208
  Transmission Date: 20220303
  Serious: Yes (Hospitalization, Disabling, Other)
  Sender: FDA-Public Use
  Company Number: FR-ABBVIE-21K-056-4187933-00

PATIENT
  Age: 3 Year
  Sex: Male

DRUGS (2)
  1. VALPROATE SODIUM [Suspect]
     Active Substance: VALPROATE SODIUM
     Indication: Product used for unknown indication
     Route: 065
  2. VAXIGRIP [Suspect]
     Active Substance: INFLUENZA VIRUS VACCINE
     Indication: Immunisation
     Route: 065
     Dates: start: 20081025

REACTIONS (32)
  - Narcolepsy [Not Recovered/Not Resolved]
  - Hypotonia [Unknown]
  - Learning disorder [Unknown]
  - Coordination abnormal [Unknown]
  - Disturbance in attention [Unknown]
  - Sleep apnoea syndrome [Unknown]
  - Cognitive disorder [Not Recovered/Not Resolved]
  - Hypersomnia [Not Recovered/Not Resolved]
  - Sleep disorder [Not Recovered/Not Resolved]
  - Hormone level abnormal [Unknown]
  - Hypnagogic hallucination [Unknown]
  - Weight increased [Not Recovered/Not Resolved]
  - Impulsive behaviour [Not Recovered/Not Resolved]
  - Cataplexy [Unknown]
  - Somnolence [Unknown]
  - Balance disorder [Unknown]
  - Fatigue [Unknown]
  - Dysarthria [Unknown]
  - Speech sound disorder [Unknown]
  - Hepatic steatosis [Unknown]
  - Vitamin D deficiency [Unknown]
  - Obesity [Unknown]
  - Nasopharyngitis [Unknown]
  - Ear infection [Unknown]
  - Wheezing [Unknown]
  - Obstructive airways disorder [Unknown]
  - Tonsillar hypertrophy [Unknown]
  - Waxy flexibility [Not Recovered/Not Resolved]
  - Sleep talking [Unknown]
  - Hyperhidrosis [Unknown]
  - Snoring [Unknown]
  - Headache [Unknown]

NARRATIVE: CASE EVENT DATE: 20080701
